FAERS Safety Report 6327837-6 (Version None)
Quarter: 2009Q3

REPORT INFORMATION
  Report Type: 
  Country: None (occurrence: None)
  Receive Date: 20090824
  Receipt Date: 20090813
  Transmission Date: 20100115
  Serious: Yes (Disabling)
  Sender: FDA-Public Use
  Company Number: 2009AL005412

PATIENT
  Age: 90 Year
  Sex: Female

DRUGS (4)
  1. BUSPIRONE HCL [Suspect]
     Indication: BIPOLAR DISORDER
     Dosage: 5 MG; BID; PO
     Route: 048
     Dates: start: 19900101, end: 20070601
  2. LITHIUM CARBONATE [Concomitant]
  3. NULYTELY [Concomitant]
  4. CO-BENELDOPA [Concomitant]

REACTIONS (1)
  - PARKINSONISM [None]
